FAERS Safety Report 5276647-X (Version None)
Quarter: 2007Q1

REPORT INFORMATION
  Report Type: 
  Country: None (occurrence: None)
  Receive Date: 20070327
  Receipt Date: 20070323
  Transmission Date: 20070707
  Serious: Yes (Death, Hospitalization, Other)
  Sender: FDA-Public Use
  Company Number: US-BRISTOL-MYERS SQUIBB COMPANY-13725833

PATIENT
  Age: 56 Year
  Sex: Female
  Weight: 85 kg

DRUGS (3)
  1. CARBOPLATIN [Suspect]
     Indication: LUNG ADENOCARCINOMA
     Route: 042
     Dates: start: 20060531, end: 20060802
  2. PEMETREXED DISODIUM [Suspect]
     Indication: LUNG ADENOCARCINOMA
     Route: 042
     Dates: start: 20060531, end: 20061025
  3. RADIATION THERAPY [Suspect]
     Indication: LUNG ADENOCARCINOMA

REACTIONS (2)
  - HAEMATEMESIS [None]
  - PULMONARY HAEMORRHAGE [None]
